FAERS Safety Report 10466201 (Version 1)
Quarter: 2014Q3

REPORT INFORMATION
  Report Type: Spontaneous
  Country: US (occurrence: None)
  Receive Date: 20140919
  Receipt Date: 20140919
  Transmission Date: 20150326
  Serious: Yes (Hospitalization, Other)
  Sender: FDA-Public Use
  Company Number: None

PATIENT
  Age: 46 Year
  Sex: Female
  Weight: 74.84 kg

DRUGS (1)
  1. LEXAPRO [Suspect]
     Active Substance: ESCITALOPRAM OXALATE
     Indication: ANXIETY
     Dates: start: 20130910, end: 20130911

REACTIONS (7)
  - Vision blurred [None]
  - Tic [None]
  - Headache [None]
  - Myoclonus [None]
  - Musculoskeletal disorder [None]
  - Dizziness [None]
  - Muscle twitching [None]

NARRATIVE: CASE EVENT DATE: 20130910
